FAERS Safety Report 17631214 (Version 4)
Quarter: 2022Q4

REPORT INFORMATION
  Report Type: Report from Study
  Country: US (occurrence: None)
  Receive Date: 20200406
  Receipt Date: 20221114
  Transmission Date: 20230113
  Serious: Yes (Hospitalization)
  Sender: FDA-Public Use
  Company Number: US-EISAI MEDICAL RESEARCH-EC-2020-072724

PATIENT
  Age: 9 Year
  Sex: Male
  Weight: 28.2 kg

DRUGS (9)
  1. LENVATINIB [Suspect]
     Active Substance: LENVATINIB
     Indication: Glioma
     Route: 048
     Dates: start: 20200324, end: 20200331
  2. EVEROLIMUS [Suspect]
     Active Substance: EVEROLIMUS
     Indication: Glioma
     Route: 048
     Dates: start: 20200324, end: 20200331
  3. DEXAMETHASONE [Concomitant]
     Active Substance: DEXAMETHASONE
  4. MELATONIN [Concomitant]
     Active Substance: MELATONIN
  5. LEVETIRACETAM [Concomitant]
     Active Substance: LEVETIRACETAM
  6. FAMOTIDINE [Concomitant]
     Active Substance: FAMOTIDINE
  7. OMEPRAZOLE [Concomitant]
     Active Substance: OMEPRAZOLE
  8. SULFAMETHOXAZOLE\TRIMETHOPRIM [Concomitant]
     Active Substance: SULFAMETHOXAZOLE\TRIMETHOPRIM
  9. AMLODIPINE [Concomitant]
     Active Substance: AMLODIPINE BESYLATE

REACTIONS (2)
  - Pneumonia [Not Recovered/Not Resolved]
  - Seizure [Recovered/Resolved]

NARRATIVE: CASE EVENT DATE: 20200331
